FAERS Safety Report 12541697 (Version 38)
Quarter: 2017Q3

REPORT INFORMATION
  Report Type: Spontaneous
  Country: JP (occurrence: JP)
  Receive Date: 20160708
  Receipt Date: 20170817
  Transmission Date: 20171127
  Serious: Yes (Hospitalization, Other)
  Sender: FDA-Public Use
  Company Number: JP-JNJFOC-20141201754

PATIENT
  Age: 50 Year
  Sex: Male

DRUGS (159)
  1. RISPERDAL [Suspect]
     Active Substance: RISPERIDONE
     Indication: BIPOLAR DISORDER
     Dosage: THE PATIENT TOOK RISPERIDONE APPROXIMATELY SIX TIMES.
     Route: 048
     Dates: start: 20160719
  2. RISPERDAL [Suspect]
     Active Substance: RISPERIDONE
     Indication: BIPOLAR DISORDER
     Dosage: IN MORNING AND EVENING
     Route: 048
     Dates: start: 20150203
  3. RISPERDAL [Suspect]
     Active Substance: RISPERIDONE
     Indication: BIPOLAR DISORDER
     Route: 048
     Dates: start: 20160627
  4. RISPERDAL [Suspect]
     Active Substance: RISPERIDONE
     Indication: BIPOLAR DISORDER
     Dosage: 8 TIMES DAILY AT MOST
     Route: 048
     Dates: start: 201607
  5. RISPERDAL [Suspect]
     Active Substance: RISPERIDONE
     Indication: IRRITABILITY
     Dosage: TWO DOSES AT 2 HOUR INTERVAL AND THE THIRD DOSE AN HOUR LATER.
     Route: 048
     Dates: start: 20160222
  6. RISPERDAL [Suspect]
     Active Substance: RISPERIDONE
     Indication: IRRITABILITY
     Dosage: TOOK DOSE OF 3MG SCHEDULED FOR NEXT MORNING
     Route: 048
     Dates: start: 20160626
  7. RISPERDAL [Suspect]
     Active Substance: RISPERIDONE
     Indication: ANXIETY
     Route: 048
     Dates: start: 20150106, end: 20150202
  8. RISPERDAL [Suspect]
     Active Substance: RISPERIDONE
     Indication: ANXIETY
     Dosage: TOOK DOSE OF 3MG SCHEDULED FOR NEXT MORNING
     Route: 048
     Dates: start: 20160626
  9. RISPERDAL [Suspect]
     Active Substance: RISPERIDONE
     Indication: ANXIETY
     Route: 048
     Dates: start: 20160722
  10. RISPERDAL [Suspect]
     Active Substance: RISPERIDONE
     Indication: ANXIETY
     Route: 048
     Dates: start: 201502
  11. RISPERDAL [Suspect]
     Active Substance: RISPERIDONE
     Indication: ANXIETY
     Route: 048
     Dates: start: 2014
  12. RISPERDAL [Suspect]
     Active Substance: RISPERIDONE
     Indication: ANXIETY
     Dosage: IN THE MORNING AND AT NOON
     Route: 048
     Dates: end: 20170117
  13. RISPERDAL [Suspect]
     Active Substance: RISPERIDONE
     Indication: BIPOLAR DISORDER
     Route: 048
     Dates: start: 201410
  14. WYPAX [Concomitant]
     Active Substance: LORAZEPAM
     Indication: PRODUCT USED FOR UNKNOWN INDICATION
     Route: 048
  15. WYPAX [Concomitant]
     Active Substance: LORAZEPAM
     Indication: PRODUCT USED FOR UNKNOWN INDICATION
     Route: 048
  16. METGLUCO [Concomitant]
     Active Substance: METFORMIN HYDROCHLORIDE
     Indication: PRODUCT USED FOR UNKNOWN INDICATION
     Route: 048
  17. LAMICTAL [Concomitant]
     Active Substance: LAMOTRIGINE
     Indication: BIPOLAR DISORDER
     Dosage: AFTER DINNER
     Route: 048
     Dates: start: 201602
  18. LAMICTAL [Concomitant]
     Active Substance: LAMOTRIGINE
     Indication: BIPOLAR DISORDER
     Dosage: AFTER DINNER
     Route: 048
     Dates: start: 201507
  19. RISPERDAL [Suspect]
     Active Substance: RISPERIDONE
     Indication: BIPOLAR DISORDER
     Route: 048
     Dates: start: 20150106, end: 20150202
  20. RISPERDAL [Suspect]
     Active Substance: RISPERIDONE
     Indication: BIPOLAR DISORDER
     Dosage: 0.5 MG DOSES OF RISPERIDONE AS NEEDED, CAN TAKE 4 TIMES AT MOST
     Route: 048
     Dates: start: 20160614
  21. RISPERDAL [Suspect]
     Active Substance: RISPERIDONE
     Indication: BIPOLAR DISORDER
     Route: 048
     Dates: start: 20160722
  22. RISPERDAL [Suspect]
     Active Substance: RISPERIDONE
     Indication: IRRITABILITY
     Route: 048
     Dates: start: 20150106, end: 20150202
  23. RISPERDAL [Suspect]
     Active Substance: RISPERIDONE
     Indication: IRRITABILITY
     Dosage: THE PATIENT TOOK RISPERIDONE APPROXIMATELY SIX TIMES.
     Route: 048
     Dates: start: 20160719
  24. RISPERDAL [Suspect]
     Active Substance: RISPERIDONE
     Indication: IRRITABILITY
     Dosage: 8 TIMES DAILY AT MOST
     Route: 048
     Dates: start: 201607
  25. RISPERDAL [Suspect]
     Active Substance: RISPERIDONE
     Indication: IRRITABILITY
     Route: 048
     Dates: start: 201410
  26. RISPERDAL [Suspect]
     Active Substance: RISPERIDONE
     Indication: IRRITABILITY
     Route: 048
     Dates: start: 2014
  27. RISPERDAL [Suspect]
     Active Substance: RISPERIDONE
     Indication: IRRITABILITY
     Route: 048
  28. RISPERDAL [Suspect]
     Active Substance: RISPERIDONE
     Indication: IRRITABILITY
     Route: 048
  29. RISPERDAL [Suspect]
     Active Substance: RISPERIDONE
     Indication: ANXIETY
     Dosage: IN THE MORNING AND IN THE EVENING.
     Route: 048
  30. RISPERDAL [Suspect]
     Active Substance: RISPERIDONE
     Indication: ANXIETY
     Dosage: IN THE MORNING.
     Route: 048
     Dates: start: 20160714
  31. RISPERDAL [Suspect]
     Active Substance: RISPERIDONE
     Indication: ANXIETY
     Route: 048
  32. RISPERDAL [Suspect]
     Active Substance: RISPERIDONE
     Indication: BIPOLAR DISORDER
     Route: 048
     Dates: start: 20141120
  33. RISPERDAL [Suspect]
     Active Substance: RISPERIDONE
     Indication: IRRITABILITY
     Route: 048
  34. RISPERDAL [Suspect]
     Active Substance: RISPERIDONE
     Indication: IRRITABILITY
     Route: 048
     Dates: start: 201410
  35. RISPERDAL [Suspect]
     Active Substance: RISPERIDONE
     Indication: ANXIETY
     Route: 048
  36. DIOVAN [Concomitant]
     Active Substance: VALSARTAN
     Indication: HYPERTENSION
     Route: 048
  37. TERNELIN [Concomitant]
     Active Substance: TIZANIDINE
     Indication: MUSCULOSKELETAL STIFFNESS
     Route: 048
  38. AMLODIN [Concomitant]
     Active Substance: AMLODIPINE BESYLATE
     Indication: HYPERTENSION
     Route: 048
  39. BENZALIN [Concomitant]
     Active Substance: NITRAZEPAM
     Route: 048
     Dates: start: 20160728
  40. RISPERDAL [Suspect]
     Active Substance: RISPERIDONE
     Indication: BIPOLAR DISORDER
     Dosage: CAN TAKE 4 TIMES DAILY AT MOST
     Route: 048
     Dates: start: 20160623
  41. RISPERDAL [Suspect]
     Active Substance: RISPERIDONE
     Indication: BIPOLAR DISORDER
     Dosage: 3 MG AND AS NECESSARY DOSES
     Route: 048
     Dates: start: 201608
  42. RISPERDAL [Suspect]
     Active Substance: RISPERIDONE
     Indication: BIPOLAR DISORDER
     Route: 048
     Dates: start: 201502
  43. RISPERDAL [Suspect]
     Active Substance: RISPERIDONE
     Indication: BIPOLAR DISORDER
     Dosage: FREQUENCY 3 TIMES IN A ROW
     Route: 048
  44. RISPERDAL [Suspect]
     Active Substance: RISPERIDONE
     Indication: IRRITABILITY
     Dosage: 3 DOSES OF RISPERIDONE AS NEEDED AND TOOK THE 4TH DOSE AFTER CONFIRMING WITH PHYSICIAN.
     Route: 048
     Dates: start: 20160517, end: 20160613
  45. RISPERDAL [Suspect]
     Active Substance: RISPERIDONE
     Indication: IRRITABILITY
     Route: 048
     Dates: start: 20141120
  46. RISPERDAL [Suspect]
     Active Substance: RISPERIDONE
     Indication: IRRITABILITY
     Dosage: IN THE MORNING AND AT NOON
     Route: 048
     Dates: end: 20170117
  47. RISPERDAL [Suspect]
     Active Substance: RISPERIDONE
     Indication: IRRITABILITY
     Route: 048
  48. RISPERDAL [Suspect]
     Active Substance: RISPERIDONE
     Indication: ANXIETY
     Dosage: CAN TAKE 4 TIMES DAILY AT MOST
     Route: 048
     Dates: start: 20160623
  49. RISPERDAL [Suspect]
     Active Substance: RISPERIDONE
     Indication: ANXIETY
     Dosage: TWO DOSES AT 2 HOUR INTERVAL AND THE THIRD DOSE AN HOUR LATER.
     Route: 048
     Dates: start: 20160222
  50. RISPERDAL [Suspect]
     Active Substance: RISPERIDONE
     Indication: ANXIETY
     Dosage: IN MORNING AND EVENING
     Route: 048
     Dates: start: 20150203
  51. RISPERDAL [Suspect]
     Active Substance: RISPERIDONE
     Indication: ANXIETY
     Route: 048
     Dates: start: 20160627
  52. RISPERDAL [Suspect]
     Active Substance: RISPERIDONE
     Indication: ANXIETY
     Dosage: 8 TIMES DAILY AT MOST
     Route: 048
     Dates: start: 201607
  53. RISPERDAL [Suspect]
     Active Substance: RISPERIDONE
     Indication: ANXIETY
     Dosage: ON AN AS NEEDED BASIS (4 TIMES A DAY, AT MOST)
     Route: 048
  54. RISPERDAL [Suspect]
     Active Substance: RISPERIDONE
     Indication: ANXIETY
     Route: 048
     Dates: start: 20141120
  55. LOXONIN [Suspect]
     Active Substance: LOXOPROFEN SODIUM
     Indication: OSTEOARTHRITIS
     Route: 048
  56. AKINETON [Concomitant]
     Active Substance: BIPERIDEN HYDROCHLORIDE
     Indication: ANXIETY
     Route: 048
  57. RIVOTRIL [Concomitant]
     Active Substance: CLONAZEPAM
     Indication: AKATHISIA
     Route: 048
  58. DEPAS [Concomitant]
     Active Substance: ETIZOLAM
     Route: 048
  59. RISPERDAL [Suspect]
     Active Substance: RISPERIDONE
     Indication: BIPOLAR DISORDER
     Dosage: 2 TIMES DAILY AT MOST.
     Route: 048
  60. RISPERDAL [Suspect]
     Active Substance: RISPERIDONE
     Indication: BIPOLAR DISORDER
     Dosage: IN THE MORNING AND IN THE EVENING.
     Route: 048
  61. RISPERDAL [Suspect]
     Active Substance: RISPERIDONE
     Indication: BIPOLAR DISORDER
     Dosage: TOOK DOSE OF 3MG SCHEDULED FOR NEXT MORNING
     Route: 048
     Dates: start: 20160626
  62. RISPERDAL [Suspect]
     Active Substance: RISPERIDONE
     Indication: BIPOLAR DISORDER
     Route: 048
     Dates: start: 2014
  63. RISPERDAL [Suspect]
     Active Substance: RISPERIDONE
     Indication: BIPOLAR DISORDER
     Dosage: IN THE MORNING AND AT NOON
     Route: 048
     Dates: end: 20170117
  64. RISPERDAL [Suspect]
     Active Substance: RISPERIDONE
     Indication: BIPOLAR DISORDER
     Route: 048
  65. RISPERDAL [Suspect]
     Active Substance: RISPERIDONE
     Indication: BIPOLAR DISORDER
     Route: 048
  66. RISPERDAL [Suspect]
     Active Substance: RISPERIDONE
     Indication: IRRITABILITY
     Dosage: CAN TAKE 4 TIMES DAILY AT MOST
     Route: 048
     Dates: start: 20160623
  67. RISPERDAL [Suspect]
     Active Substance: RISPERIDONE
     Indication: IRRITABILITY
     Dosage: PATIENT TOOK 3 MG AROUND 3:00 IN MORNING, 1 MG AFTER BREAKFAST AND A 2ND DOSE OF 1 MG AROUND 9:30.
     Route: 048
     Dates: start: 20160322
  68. RISPERDAL [Suspect]
     Active Substance: RISPERIDONE
     Indication: IRRITABILITY
     Dosage: IN THE MORNING.
     Route: 048
     Dates: start: 20160714
  69. RISPERDAL [Suspect]
     Active Substance: RISPERIDONE
     Indication: IRRITABILITY
     Dosage: IN MORNING AND EVENING
     Route: 048
     Dates: start: 20150203
  70. RISPERDAL [Suspect]
     Active Substance: RISPERIDONE
     Indication: IRRITABILITY
     Dosage: FREQUENCY 3 TIMES IN A ROW
     Route: 048
  71. RISPERDAL [Suspect]
     Active Substance: RISPERIDONE
     Indication: ANXIETY
     Dosage: THE PATIENT TOOK RISPERIDONE APPROXIMATELY SIX TIMES.
     Route: 048
     Dates: start: 20160719
  72. AKINETON [Concomitant]
     Active Substance: BIPERIDEN HYDROCHLORIDE
     Indication: ANXIETY
     Route: 048
  73. AMOBAN [Concomitant]
     Active Substance: ZOPICLONE
     Indication: PRODUCT USED FOR UNKNOWN INDICATION
     Route: 048
  74. LEVOTOMIN [Concomitant]
     Active Substance: LEVOMEPROMAZINE
     Indication: PRODUCT USED FOR UNKNOWN INDICATION
     Route: 048
     Dates: start: 20150114, end: 20150114
  75. DIOVAN [Concomitant]
     Active Substance: VALSARTAN
     Indication: HYPERTENSION
     Route: 048
     Dates: start: 20170315
  76. AMLODIN [Concomitant]
     Active Substance: AMLODIPINE BESYLATE
     Indication: HYPERTENSION
     Route: 048
     Dates: end: 20150219
  77. RIVOTRIL [Concomitant]
     Active Substance: CLONAZEPAM
     Indication: AKATHISIA
     Route: 048
     Dates: start: 20170606, end: 2017
  78. RIVOTRIL [Concomitant]
     Active Substance: CLONAZEPAM
     Indication: AKATHISIA
     Route: 048
     Dates: start: 20161220, end: 20170605
  79. RISPERDAL [Suspect]
     Active Substance: RISPERIDONE
     Indication: BIPOLAR DISORDER
     Dosage: ON AN AS NEEDED BASIS (4 TIMES A DAY, AT MOST)
     Route: 048
  80. RISPERDAL [Suspect]
     Active Substance: RISPERIDONE
     Indication: BIPOLAR DISORDER
     Route: 048
     Dates: start: 201410
  81. RISPERDAL [Suspect]
     Active Substance: RISPERIDONE
     Indication: BIPOLAR DISORDER
     Dosage: IN THE MORNING AND EVENING
     Route: 048
     Dates: start: 201607
  82. RISPERDAL [Suspect]
     Active Substance: RISPERIDONE
     Indication: IRRITABILITY
     Route: 048
     Dates: start: 20160627
  83. RISPERDAL [Suspect]
     Active Substance: RISPERIDONE
     Indication: IRRITABILITY
     Route: 048
     Dates: start: 201502
  84. RISPERDAL [Suspect]
     Active Substance: RISPERIDONE
     Indication: IRRITABILITY
     Dosage: IN THE MORNING AND EVENING
     Route: 048
     Dates: start: 201607
  85. RISPERDAL [Suspect]
     Active Substance: RISPERIDONE
     Indication: IRRITABILITY
     Dosage: 2 TIMES DAILY AT MOST.
     Route: 048
  86. RISPERDAL [Suspect]
     Active Substance: RISPERIDONE
     Indication: IRRITABILITY
     Route: 048
  87. RISPERDAL [Suspect]
     Active Substance: RISPERIDONE
     Indication: ANXIETY
     Dosage: THE PATIENT TOOK RISPEIDONE APPROXIMATELY SIX TIMES.
     Route: 048
     Dates: start: 20160713
  88. RISPERDAL [Suspect]
     Active Substance: RISPERIDONE
     Indication: ANXIETY
     Route: 048
     Dates: start: 201410
  89. RISPERDAL [Suspect]
     Active Substance: RISPERIDONE
     Indication: ANXIETY
     Route: 048
  90. RISPERDAL [Suspect]
     Active Substance: RISPERIDONE
     Indication: ANXIETY
     Route: 048
  91. RISPERDAL [Suspect]
     Active Substance: RISPERIDONE
     Indication: ANXIETY
     Dosage: 2 TIMES DAILY AT MOST.
     Route: 048
  92. RISPERDAL [Suspect]
     Active Substance: RISPERIDONE
     Indication: ANXIETY
     Dosage: DOSE OF RISPERIDONE WAS AS MUCH AS 8 MG.
     Route: 048
  93. RISPERDAL [Suspect]
     Active Substance: RISPERIDONE
     Indication: ANXIETY
     Dosage: 3 DOSES OF RISPERIDONE AS NEEDED AND TOOK THE 4TH DOSE AFTER CONFIRMING WITH PHYSICIAN.
     Route: 048
     Dates: start: 20160517, end: 20160613
  94. RISPERDAL [Suspect]
     Active Substance: RISPERIDONE
     Indication: BIPOLAR DISORDER
     Route: 048
  95. RISPERDAL [Suspect]
     Active Substance: RISPERIDONE
     Indication: IRRITABILITY
     Route: 048
  96. RISPERDAL [Suspect]
     Active Substance: RISPERIDONE
     Indication: ANXIETY
     Dosage: SOMETIMES TOOK 4 DOSES IN THE MORNING
     Route: 048
  97. MEILAX [Concomitant]
     Active Substance: ETHYL LOFLAZEPATE
     Indication: PRODUCT USED FOR UNKNOWN INDICATION
     Dosage: TOOK HALF (WHICH WAS TO BE TAKEN AT NIGHT)??AND TOOK ANOTHER HALF ALSO BEFORE THE SCHEDULED TIME
     Route: 048
     Dates: start: 20160627
  98. AKINETON [Concomitant]
     Active Substance: BIPERIDEN HYDROCHLORIDE
     Indication: IRRITABILITY
     Dosage: 3 TIMES DAILY AT MOST.
     Route: 048
     Dates: start: 20150517
  99. SILECE [Concomitant]
     Active Substance: FLUNITRAZEPAM
     Indication: PRODUCT USED FOR UNKNOWN INDICATION
     Route: 048
  100. DIOVAN [Concomitant]
     Active Substance: VALSARTAN
     Indication: HYPERTENSION
     Dosage: 1.5 TABLETS
     Route: 048
     Dates: end: 20170314
  101. DIOVAN [Concomitant]
     Active Substance: VALSARTAN
     Indication: HYPERTENSION
     Route: 048
  102. XYLOCAINE [Concomitant]
     Active Substance: LIDOCAINE HYDROCHLORIDE
     Indication: PRODUCT USED FOR UNKNOWN INDICATION
     Route: 065
  103. RIVOTRIL [Concomitant]
     Active Substance: CLONAZEPAM
     Indication: AKATHISIA
     Route: 048
  104. RISPERDAL [Suspect]
     Active Substance: RISPERIDONE
     Indication: BIPOLAR DISORDER
     Dosage: TWO DOSES AT 2 HOUR INTERVAL AND THE THIRD DOSE AN HOUR LATER.
     Route: 048
     Dates: start: 20160222
  105. RISPERDAL [Suspect]
     Active Substance: RISPERIDONE
     Indication: BIPOLAR DISORDER
     Dosage: IN THE MORNING.
     Route: 048
     Dates: start: 20160714
  106. RISPERDAL [Suspect]
     Active Substance: RISPERIDONE
     Indication: BIPOLAR DISORDER
     Route: 048
     Dates: end: 20150105
  107. RISPERDAL [Suspect]
     Active Substance: RISPERIDONE
     Indication: BIPOLAR DISORDER
     Route: 048
  108. RISPERDAL [Suspect]
     Active Substance: RISPERIDONE
     Indication: BIPOLAR DISORDER
     Route: 048
  109. RISPERDAL [Suspect]
     Active Substance: RISPERIDONE
     Indication: BIPOLAR DISORDER
     Route: 048
  110. RISPERDAL [Suspect]
     Active Substance: RISPERIDONE
     Indication: IRRITABILITY
     Dosage: ON AN AS NEEDED BASIS (4 TIMES A DAY, AT MOST)
     Route: 048
  111. RISPERDAL [Suspect]
     Active Substance: RISPERIDONE
     Indication: IRRITABILITY
     Route: 048
  112. RISPERDAL [Suspect]
     Active Substance: RISPERIDONE
     Indication: IRRITABILITY
     Dosage: DOSE OF RISPERIDONE WAS AS MUCH AS 8 MG.
     Route: 048
  113. RISPERDAL [Suspect]
     Active Substance: RISPERIDONE
     Indication: IRRITABILITY
     Dosage: IN THE MORNING AND IN THE EVENING.
     Route: 048
  114. RISPERDAL [Suspect]
     Active Substance: RISPERIDONE
     Indication: ANXIETY
     Dosage: PATIENT TOOK 3 MG AROUND 3:00 IN MORNING, 1 MG AFTER BREAKFAST AND A 2ND DOSE OF 1 MG AROUND 9:30.
     Route: 048
     Dates: start: 20160322
  115. RISPERDAL [Suspect]
     Active Substance: RISPERIDONE
     Indication: ANXIETY
     Dosage: IN THE MORNING AND EVENING
     Route: 048
     Dates: start: 201607
  116. RISPERDAL [Suspect]
     Active Substance: RISPERIDONE
     Indication: ANXIETY
     Route: 048
  117. RISPERDAL [Suspect]
     Active Substance: RISPERIDONE
     Indication: ANXIETY
     Dosage: FREQUENCY 3 TIMES IN A ROW
     Route: 048
  118. RISPERDAL [Suspect]
     Active Substance: RISPERIDONE
     Indication: ANXIETY
     Route: 048
  119. RISPERDAL [Suspect]
     Active Substance: RISPERIDONE
     Indication: IRRITABILITY
     Dosage: SOMETIMES TOOK 4 DOSES IN THE MORNING
     Route: 048
  120. AKINETON [Concomitant]
     Active Substance: BIPERIDEN HYDROCHLORIDE
     Indication: IRRITABILITY
     Route: 048
  121. AKINETON [Concomitant]
     Active Substance: BIPERIDEN HYDROCHLORIDE
     Indication: IRRITABILITY
     Dosage: 3 TIMES DAILY AT MOST.
     Route: 048
     Dates: start: 20160517, end: 20160613
  122. AKINETON [Concomitant]
     Active Substance: BIPERIDEN HYDROCHLORIDE
     Indication: ANXIETY
     Dosage: 3 TIMES DAILY AT MOST.
     Route: 048
     Dates: start: 20160517, end: 20160613
  123. AKINETON [Concomitant]
     Active Substance: BIPERIDEN HYDROCHLORIDE
     Indication: ANXIETY
     Route: 048
  124. AKINETON [Concomitant]
     Active Substance: BIPERIDEN HYDROCHLORIDE
     Indication: ANXIETY
     Dosage: 4 TIMES DAILY AT MOST
     Route: 048
     Dates: start: 20160614
  125. AKINETON [Concomitant]
     Active Substance: BIPERIDEN HYDROCHLORIDE
     Indication: ANXIETY
     Dosage: 3 TIMES DAILY AT MOST.
     Route: 048
     Dates: start: 20150517
  126. SILECE [Concomitant]
     Active Substance: FLUNITRAZEPAM
     Indication: PRODUCT USED FOR UNKNOWN INDICATION
     Route: 048
  127. AZEPTIN [Concomitant]
     Active Substance: AZELASTINE HYDROCHLORIDE
     Indication: PRODUCT USED FOR UNKNOWN INDICATION
     Route: 065
  128. AMLODIN [Concomitant]
     Active Substance: AMLODIPINE BESYLATE
     Indication: HYPERTENSION
     Route: 048
  129. RISPERDAL [Suspect]
     Active Substance: RISPERIDONE
     Indication: BIPOLAR DISORDER
     Dosage: 3 DOSES OF RISPERIDONE AS NEEDED AND TOOK THE 4TH DOSE AFTER CONFIRMING WITH PHYSICIAN.
     Route: 048
     Dates: start: 20160517, end: 20160613
  130. RISPERDAL [Suspect]
     Active Substance: RISPERIDONE
     Indication: BIPOLAR DISORDER
     Dosage: PATIENT TOOK 3 MG AROUND 3:00 IN MORNING, 1 MG AFTER BREAKFAST AND A 2ND DOSE OF 1 MG AROUND 9:30.
     Route: 048
     Dates: start: 20160322
  131. RISPERDAL [Suspect]
     Active Substance: RISPERIDONE
     Indication: BIPOLAR DISORDER
     Route: 048
     Dates: start: 20141120
  132. RISPERDAL [Suspect]
     Active Substance: RISPERIDONE
     Indication: BIPOLAR DISORDER
     Dosage: DOSE OF RISPERIDONE WAS AS MUCH AS 8 MG.
     Route: 048
  133. RISPERDAL [Suspect]
     Active Substance: RISPERIDONE
     Indication: IRRITABILITY
     Dosage: THE PATIENT TOOK RISPEIDONE APPROXIMATELY SIX TIMES.
     Route: 048
     Dates: start: 20160713
  134. RISPERDAL [Suspect]
     Active Substance: RISPERIDONE
     Indication: ANXIETY
     Dosage: 3 MG AND AS NECESSARY DOSES
     Route: 048
     Dates: start: 201608
  135. RISPERDAL [Suspect]
     Active Substance: RISPERIDONE
     Indication: ANXIETY
     Route: 048
     Dates: end: 20150105
  136. RISPERDAL [Suspect]
     Active Substance: RISPERIDONE
     Indication: BIPOLAR DISORDER
     Route: 048
  137. RISPERDAL [Suspect]
     Active Substance: RISPERIDONE
     Indication: BIPOLAR DISORDER
     Dosage: SOMETIMES TOOK 4 DOSES IN THE MORNING
     Route: 048
  138. RISPERDAL [Suspect]
     Active Substance: RISPERIDONE
     Indication: ANXIETY
     Route: 048
     Dates: start: 201410
  139. MEILAX [Concomitant]
     Active Substance: ETHYL LOFLAZEPATE
     Indication: PRODUCT USED FOR UNKNOWN INDICATION
     Dosage: MORNING
     Route: 048
  140. AKINETON [Concomitant]
     Active Substance: BIPERIDEN HYDROCHLORIDE
     Indication: IRRITABILITY
     Route: 048
  141. LEVOTOMIN [Concomitant]
     Active Substance: LEVOMEPROMAZINE
     Indication: PRODUCT USED FOR UNKNOWN INDICATION
     Route: 048
  142. RIVOTRIL [Concomitant]
     Active Substance: CLONAZEPAM
     Indication: AKATHISIA
     Route: 048
  143. RISPERDAL [Suspect]
     Active Substance: RISPERIDONE
     Indication: BIPOLAR DISORDER
     Dosage: THE PATIENT TOOK RISPEIDONE APPROXIMATELY SIX TIMES.
     Route: 048
     Dates: start: 20160713
  144. RISPERDAL [Suspect]
     Active Substance: RISPERIDONE
     Indication: IRRITABILITY
     Dosage: 0.5 MG DOSES OF RISPERIDONE AS NEEDED, CAN TAKE 4 TIMES AT MOST
     Route: 048
     Dates: start: 20160614
  145. RISPERDAL [Suspect]
     Active Substance: RISPERIDONE
     Indication: IRRITABILITY
     Route: 048
     Dates: start: 20160722
  146. RISPERDAL [Suspect]
     Active Substance: RISPERIDONE
     Indication: IRRITABILITY
     Dosage: 3 MG AND AS NECESSARY DOSES
     Route: 048
     Dates: start: 201608
  147. RISPERDAL [Suspect]
     Active Substance: RISPERIDONE
     Indication: IRRITABILITY
     Route: 048
     Dates: end: 20150105
  148. RISPERDAL [Suspect]
     Active Substance: RISPERIDONE
     Indication: ANXIETY
     Dosage: 0.5 MG DOSES OF RISPERIDONE AS NEEDED, CAN TAKE 4 TIMES AT MOST
     Route: 048
     Dates: start: 20160614
  149. RISPERDAL [Suspect]
     Active Substance: RISPERIDONE
     Indication: ANXIETY
     Route: 048
     Dates: start: 20141120
  150. RISPERDAL [Suspect]
     Active Substance: RISPERIDONE
     Indication: IRRITABILITY
     Route: 048
     Dates: start: 20141120
  151. RISPERDAL [Suspect]
     Active Substance: RISPERIDONE
     Indication: ANXIETY
     Route: 048
  152. MEILAX [Concomitant]
     Active Substance: ETHYL LOFLAZEPATE
     Indication: PRODUCT USED FOR UNKNOWN INDICATION
     Dosage: AFTER DINNER, FOR 25 YEARS
     Route: 048
  153. AKINETON [Concomitant]
     Active Substance: BIPERIDEN HYDROCHLORIDE
     Indication: IRRITABILITY
     Route: 048
  154. AKINETON [Concomitant]
     Active Substance: BIPERIDEN HYDROCHLORIDE
     Indication: IRRITABILITY
     Dosage: 4 TIMES DAILY AT MOST
     Route: 048
     Dates: start: 20160614
  155. ACTOS [Concomitant]
     Active Substance: PIOGLITAZONE HYDROCHLORIDE
     Indication: PRODUCT USED FOR UNKNOWN INDICATION
     Route: 048
  156. LAMICTAL [Concomitant]
     Active Substance: LAMOTRIGINE
     Indication: BIPOLAR DISORDER
     Dosage: AFTER DINNER
     Route: 048
  157. AMLODIN [Concomitant]
     Active Substance: AMLODIPINE BESYLATE
     Indication: HYPERTENSION
     Dosage: 2 TABLETS
     Route: 048
  158. RIVOTRIL [Concomitant]
     Active Substance: CLONAZEPAM
     Indication: AKATHISIA
     Route: 048
     Dates: start: 2017
  159. BELSOMRA [Concomitant]
     Active Substance: SUVOREXANT
     Route: 048
     Dates: start: 20161220

REACTIONS (51)
  - Treatment noncompliance [Unknown]
  - Gamma-glutamyltransferase increased [Unknown]
  - Depressed mood [Unknown]
  - Dyskinesia [Unknown]
  - Abdominal distension [Unknown]
  - Drug dependence [Unknown]
  - Stress [Unknown]
  - Disturbance in attention [Unknown]
  - Depression [Recovered/Resolved]
  - Restlessness [Unknown]
  - Tremor [Unknown]
  - Diabetes mellitus [Unknown]
  - Fall [Unknown]
  - Panic reaction [Unknown]
  - Irritability [Not Recovered/Not Resolved]
  - Hypoaesthesia [Unknown]
  - Dysphoria [Unknown]
  - Hepatic function abnormal [Recovered/Resolved]
  - Malaise [Unknown]
  - Anxiety [Not Recovered/Not Resolved]
  - Gait disturbance [Unknown]
  - Mass [Unknown]
  - Blood pressure decreased [Unknown]
  - Abdominal discomfort [Unknown]
  - Diabetic neuropathy [Unknown]
  - Glycosylated haemoglobin increased [Not Recovered/Not Resolved]
  - Insomnia [Unknown]
  - Dizziness postural [Recovered/Resolved]
  - Musculoskeletal stiffness [Unknown]
  - Somnolence [Recovered/Resolved]
  - Orthostatic hypotension [Unknown]
  - Dizziness [Unknown]
  - Dehydration [Unknown]
  - Pain in extremity [Unknown]
  - Constipation [Unknown]
  - Therapeutic response decreased [Unknown]
  - Off label use [Unknown]
  - Feeling abnormal [Unknown]
  - Aphonia [Unknown]
  - Somatic symptom disorder [Unknown]
  - Incontinence [Recovered/Resolved]
  - Hypomania [Unknown]
  - Increased appetite [Unknown]
  - Nausea [Unknown]
  - Thinking abnormal [Unknown]
  - Bradykinesia [Unknown]
  - Inappropriate schedule of drug administration [Unknown]
  - Product use in unapproved indication [Unknown]
  - Akathisia [Unknown]
  - Overdose [Unknown]
  - Apathy [Unknown]

NARRATIVE: CASE EVENT DATE: 2014
